FAERS Safety Report 11795602 (Version 1)
Quarter: 2015Q4

REPORT INFORMATION
  Report Type: Spontaneous
  Country: IT (occurrence: IT)
  Receive Date: 20151202
  Receipt Date: 20151202
  Transmission Date: 20160305
  Serious: Yes (Life-Threatening, Other)
  Sender: FDA-Public Use
  Company Number: IT-009507513-1504ITA015930

PATIENT
  Age: 76 Year
  Sex: Male

DRUGS (10)
  1. ROCEFIN [Suspect]
     Active Substance: CEFTRIAXONE SODIUM
     Indication: ENDOCARDITIS
     Dosage: 6 GM, UNK
     Route: 042
     Dates: start: 20111102, end: 20111104
  2. ASPIRIN. [Concomitant]
     Active Substance: ASPIRIN
     Indication: PRODUCT USED FOR UNKNOWN INDICATION
     Dosage: UNK UNK, UNK
     Route: 065
  3. CIPROFLOXACIN. [Concomitant]
     Active Substance: CIPROFLOXACIN
     Indication: PRODUCT USED FOR UNKNOWN INDICATION
     Dosage: UNK UNK, UNK
     Route: 065
  4. GENTALYN [Suspect]
     Active Substance: GENTAMICIN SULFATE
     Indication: ENDOCARDITIS
     Dosage: 240 MG, UNK
     Route: 042
     Dates: start: 20111007, end: 20111020
  5. GENTALYN [Suspect]
     Active Substance: GENTAMICIN SULFATE
     Dosage: UNK UNK, UNK
     Route: 042
     Dates: start: 20111106, end: 20111108
  6. RAMIPRIL. [Concomitant]
     Active Substance: RAMIPRIL
     Indication: PRODUCT USED FOR UNKNOWN INDICATION
     Dosage: UNK UNK, UNK
     Route: 065
     Dates: start: 20110101, end: 20111013
  7. RIFADIN [Suspect]
     Active Substance: RIFAMPIN
     Indication: ENDOCARDITIS
     Dosage: 600 MG, QD
     Route: 042
     Dates: start: 20111008, end: 20111102
  8. CUBICIN [Suspect]
     Active Substance: DAPTOMYCIN
     Indication: ENDOCARDITIS
     Dosage: 300 MG, QD
     Route: 042
     Dates: start: 20111102, end: 20111105
  9. VANCOMYCIN [Suspect]
     Active Substance: VANCOMYCIN
     Indication: ENDOCARDITIS
     Dosage: 2 GM, UNK
     Route: 042
     Dates: start: 20111007, end: 20111102
  10. PANTORC [Suspect]
     Active Substance: PANTOPRAZOLE SODIUM
     Indication: PROPHYLAXIS AGAINST GASTROINTESTINAL ULCER
     Dosage: 20 MG, UNK
     Route: 042
     Dates: start: 20090101, end: 20111107

REACTIONS (1)
  - Drug reaction with eosinophilia and systemic symptoms [Recovering/Resolving]

NARRATIVE: CASE EVENT DATE: 20111102
